APPROVED DRUG PRODUCT: CHENODIOL
Active Ingredient: CHENODIOL
Strength: 250MG
Dosage Form/Route: TABLET;ORAL
Application: A091019 | Product #001
Applicant: LGM PHARMA SOLUTIONS LLC
Approved: Oct 22, 2009 | RLD: No | RS: Yes | Type: RX